FAERS Safety Report 25425894 (Version 6)
Quarter: 2025Q3

REPORT INFORMATION
  Report Type: Report from Study
  Country: US (occurrence: US)
  Receive Date: 20250612
  Receipt Date: 20250923
  Transmission Date: 20251021
  Serious: Yes (Hospitalization, Other)
  Sender: MALLINCKRODT
  Company Number: US-MALLINCKRODT-MNK202503357

PATIENT
  Age: 63 Year
  Sex: Female

DRUGS (18)
  1. CORTICOTROPIN [Suspect]
     Active Substance: CORTICOTROPIN
     Indication: Psoriatic arthropathy
     Dosage: 80 UNITS
     Route: 058
  2. CORTICOTROPIN [Suspect]
     Active Substance: CORTICOTROPIN
     Indication: Psoriasis
  3. ELIQUIS [Suspect]
     Active Substance: APIXABAN
     Indication: Product used for unknown indication
  4. CIMZIA [Concomitant]
     Active Substance: CERTOLIZUMAB PEGOL
  5. HEMOGLOBIN [Concomitant]
     Active Substance: HEMOGLOBIN
     Dosage: UNKNOWN
  6. TREMFYA [Concomitant]
     Active Substance: GUSELKUMAB
  7. OPZELURA [Concomitant]
     Active Substance: RUXOLITINIB PHOSPHATE
     Indication: Vitiligo
  8. OPZELURA [Concomitant]
     Active Substance: RUXOLITINIB PHOSPHATE
     Indication: Dermatitis
  9. LEUCOVORIN CALCIUM [Concomitant]
     Active Substance: LEUCOVORIN CALCIUM
  10. METHOTREXATE [Concomitant]
     Active Substance: METHOTREXATE
  11. PROBIOTIC ACIDOPHILUS [LACTOBACILLUS ACIDOPHILUS] [Concomitant]
  12. FISH OIL [Concomitant]
     Active Substance: FISH OIL
  13. ONDANSETRON HYDROCHLORIDE [Concomitant]
     Active Substance: ONDANSETRON HYDROCHLORIDE
  14. PERCOCET [Concomitant]
     Active Substance: ACETAMINOPHEN\OXYCODONE HYDROCHLORIDE
  15. BELBUCA [Concomitant]
     Active Substance: BUPRENORPHINE HYDROCHLORIDE
  16. OTEZLA [Concomitant]
     Active Substance: APREMILAST
  17. ALENDRONATE SODIUM [Concomitant]
     Active Substance: ALENDRONATE SODIUM
  18. SIMVASTATIN [Concomitant]
     Active Substance: SIMVASTATIN

REACTIONS (10)
  - Osteonecrosis [Unknown]
  - Blepharoplasty [Recovering/Resolving]
  - Neoplasm progression [Unknown]
  - Tooth disorder [Unknown]
  - Anxiety [Unknown]
  - Stress [Unknown]
  - Hyperhidrosis [Unknown]
  - Pain [Unknown]
  - Ill-defined disorder [Unknown]
  - Fatigue [Unknown]

NARRATIVE: CASE EVENT DATE: 20250707
